FAERS Safety Report 9479117 (Version 1)
Quarter: 2013Q3

REPORT INFORMATION
  Report Type: Spontaneous
  Country: JP (occurrence: JP)
  Receive Date: 20130827
  Receipt Date: 20130827
  Transmission Date: 20140515
  Serious: Yes (Hospitalization)
  Sender: FDA-Public Use
  Company Number: JP-GLAXOSMITHKLINE-B0917565A

PATIENT
  Age: 84 Year
  Sex: Male

DRUGS (3)
  1. PAXIL [Suspect]
     Indication: DEPRESSION
     Dosage: 10MG PER DAY
     Route: 048
     Dates: end: 20130813
  2. TALIPEXOLE HYDROCHLORIDE [Concomitant]
     Indication: DEPRESSION
     Route: 048
  3. MEDEPOLIN [Concomitant]
     Indication: DEPRESSED MOOD
     Route: 048
     Dates: start: 201303

REACTIONS (11)
  - Serotonin syndrome [Not Recovered/Not Resolved]
  - Rhabdomyolysis [Unknown]
  - Cognitive disorder [Unknown]
  - Tachycardia [Unknown]
  - Myoclonus [Not Recovered/Not Resolved]
  - Confusional state [Unknown]
  - Agitation [Unknown]
  - Musculoskeletal stiffness [Recovering/Resolving]
  - Asthenia [Unknown]
  - Hyponatraemia [Unknown]
  - Weight decreased [Unknown]
